FAERS Safety Report 22073339 (Version 1)
Quarter: 2023Q1

REPORT INFORMATION
  Report Type: Spontaneous
  Country: JP (occurrence: JP)
  Receive Date: 20230308
  Receipt Date: 20230308
  Transmission Date: 20230417
  Serious: Yes (Death, Other)
  Sender: FDA-Public Use
  Company Number: JP-GSKNCCC-Case-01684655_AE-68186

PATIENT

DRUGS (1)
  1. INCRUSE ELLIPTA [Suspect]
     Active Substance: UMECLIDINIUM BROMIDE
     Indication: Tobacco user
     Dosage: UNK

REACTIONS (2)
  - Acute leukaemia [Fatal]
  - Product use in unapproved indication [Unknown]
